FAERS Safety Report 8152037-7 (Version None)
Quarter: 2012Q1

REPORT INFORMATION
  Report Type: 
  Country: None (occurrence: None)
  Receive Date: 20120215
  Receipt Date: 20120215
  Transmission Date: 20120608
  Serious: Yes (Life-Threatening)
  Sender: FDA-Public Use
  Company Number: None

PATIENT
  Age: 49 Year
  Sex: Male
  Weight: 158.9 kg

DRUGS (1)
  1. VANCOMYCIN [Suspect]
     Indication: CELLULITIS
     Dosage: 1750 MG ONCE IV
     Route: 042
     Dates: start: 20111230, end: 20111230

REACTIONS (4)
  - AGITATION [None]
  - HAEMOPTYSIS [None]
  - ANAPHYLACTIC REACTION [None]
  - CARDIO-RESPIRATORY ARREST [None]
